FAERS Safety Report 5932918-2 (Version None)
Quarter: 2008Q4

REPORT INFORMATION
  Report Type: 
  Country: None (occurrence: None)
  Receive Date: 20081027
  Receipt Date: 20081027
  Transmission Date: 20090506
  Serious: Yes (Hospitalization)
  Sender: FDA-Public Use
  Company Number: None

PATIENT
  Age: 56 Year
  Sex: Female

DRUGS (11)
  1. LAMICTAL [Suspect]
     Indication: CONVERSION DISORDER
     Dosage: GRADUAL TITRATION UP TO 25MG  BID PO
     Route: 048
     Dates: start: 20080102, end: 20080125
  2. CITALOPRAM [Concomitant]
  3. CARBIDOPA AND LEVODOPA [Concomitant]
  4. ENTACAPONE [Concomitant]
  5. PRAMIPEXOLE DIHYDROCHLORIDE [Concomitant]
  6. WARFARIN SODIUM [Concomitant]
  7. ACETAMINOPHEN [Concomitant]
  8. DOCUSATE [Concomitant]
  9. MULTI-VITAMIN [Concomitant]
  10. OXYCODONE HCL [Suspect]
  11. CLOTRIMAZOLE [Concomitant]

REACTIONS (4)
  - BLOOD CREATINE PHOSPHOKINASE INCREASED [None]
  - HEPATITIS [None]
  - HYPOXIA [None]
  - MUSCULOSKELETAL CHEST PAIN [None]
